FAERS Safety Report 11409271 (Version 8)
Quarter: 2016Q4

REPORT INFORMATION
  Report Type: Report from Study
  Country: US (occurrence: US)
  Receive Date: 20150824
  Receipt Date: 20161226
  Transmission Date: 20170206
  Serious: No
  Sender: FDA-Public Use
  Company Number: PHHY2014US136010

PATIENT
  Age: 36 Year
  Sex: Female

DRUGS (5)
  1. GILENYA [Suspect]
     Active Substance: FINGOLIMOD HYDROCHLORIDE
     Indication: MULTIPLE SCLEROSIS
     Dosage: UNK UNK, QD
     Route: 048
  2. VITAMIN D [Concomitant]
     Active Substance: CHOLECALCIFEROL
     Indication: VITAMIN SUPPLEMENTATION
     Dosage: UNK
     Route: 065
     Dates: start: 20150520
  3. CALCIUM + VITAMIN D                /01606701/ [Concomitant]
     Indication: GENERAL PHYSICAL CONDITION
     Dosage: UNK
     Route: 065
     Dates: start: 20151118
  4. FLINTSTONES [Concomitant]
     Indication: GENERAL PHYSICAL CONDITION
     Dosage: UNK
     Route: 065
     Dates: start: 20151118
  5. CARBAMAZEPINE. [Concomitant]
     Active Substance: CARBAMAZEPINE
     Indication: NEURALGIA
     Dosage: 200 MGS 1 TID
     Route: 065
     Dates: start: 20150304

REACTIONS (22)
  - Headache [Recovered/Resolved]
  - Urinary incontinence [Unknown]
  - Diarrhoea [Recovered/Resolved]
  - Lentigo [Unknown]
  - Fibrous histiocytoma [Unknown]
  - Aphasia [Unknown]
  - Staphylococcal skin infection [Recovered/Resolved]
  - Ear infection [Recovered/Resolved]
  - Vitamin D decreased [Recovered/Resolved]
  - Nausea [Unknown]
  - Lymphocyte count decreased [Unknown]
  - Acrochordon [Unknown]
  - Gait disturbance [Unknown]
  - Multiple sclerosis relapse [Recovered/Resolved]
  - Ear pain [Recovered/Resolved]
  - Dysarthria [Unknown]
  - Fall [Recovered/Resolved]
  - Fatigue [Recovered/Resolved]
  - Headache [Unknown]
  - Melanocytic naevus [Unknown]
  - Blood bilirubin increased [Unknown]
  - Micturition urgency [Unknown]

NARRATIVE: CASE EVENT DATE: 20140604
